FAERS Safety Report 8422966-5 (Version None)
Quarter: 2012Q2

REPORT INFORMATION
  Report Type: 
  Country: None (occurrence: None)
  Receive Date: 20120608
  Receipt Date: 20120601
  Transmission Date: 20120825
  Serious: Yes (Other)
  Sender: FDA-Public Use
  Company Number: CH-GLAXOSMITHKLINE-B0806542A

PATIENT
  Sex: Female

DRUGS (4)
  1. LAMICTAL [Suspect]
     Indication: BIPOLAR DISORDER
     Route: 065
  2. SURMONTIL [Concomitant]
  3. TRILEPTAL [Concomitant]
  4. OXAZEPAM [Concomitant]

REACTIONS (1)
  - MELANOCYTIC NAEVUS [None]
